FAERS Safety Report 18857904 (Version 2)
Quarter: 2021Q4

REPORT INFORMATION
  Report Type: Spontaneous
  Country: US (occurrence: US)
  Receive Date: 20210208
  Receipt Date: 20211213
  Transmission Date: 20220303
  Serious: No
  Sender: FDA-Public Use
  Company Number: US-BAUSCH-BL-2021-001980

PATIENT
  Sex: Female

DRUGS (2)
  1. LACRISERT [Suspect]
     Active Substance: HYDROXYPROPYL CELLULOSE
     Indication: Dry eye
     Route: 065
  2. LACRISERT [Suspect]
     Active Substance: HYDROXYPROPYL CELLULOSE
     Route: 065

REACTIONS (9)
  - Dry eye [Unknown]
  - Lacrimation increased [Unknown]
  - Discomfort [Unknown]
  - Drug ineffective [Unknown]
  - Product size issue [Unknown]
  - Poor quality product administered [Unknown]
  - Therapy interrupted [Unknown]
  - Product availability issue [Unknown]
  - Product physical issue [Unknown]

NARRATIVE: CASE EVENT DATE: 20210101
